FAERS Safety Report 13869218 (Version 7)
Quarter: 2017Q4

REPORT INFORMATION
  Report Type: Spontaneous
  Country: ES (occurrence: ES)
  Receive Date: 20170815
  Receipt Date: 20171031
  Transmission Date: 20180320
  Serious: Yes (Other)
  Sender: FDA-Public Use
  Company Number: ES-009507513-1708ESP003043

PATIENT
  Age: 58 Year
  Sex: Female

DRUGS (7)
  1. SINEMET PLUS 25/100 MG (IR) [Suspect]
     Active Substance: CARBIDOPA\LEVODOPA
     Dosage: UNK
     Route: 048
     Dates: start: 201708, end: 201708
  2. SINEMET [Suspect]
     Active Substance: CARBIDOPA\LEVODOPA
     Dosage: TWO TABLET PER DAY (STRENGTH 25/250 MG)
     Route: 048
  3. SINEMET PLUS 25/100 MG (IR) [Suspect]
     Active Substance: CARBIDOPA\LEVODOPA
     Indication: PARKINSON^S DISEASE
     Dosage: THREE INTAKES WITH TWO TABLETS AND TWO INTAKES WITH ONE AND THREE QUARTER TABLETS
     Route: 048
     Dates: start: 2014
  4. RIVOTRIL [Concomitant]
     Active Substance: CLONAZEPAM
     Indication: SLEEP DISORDER
     Dosage: A QUARTER OF THE 0.5 MG TABLETS
     Route: 048
     Dates: start: 201706
  5. SINEMET [Suspect]
     Active Substance: CARBIDOPA\LEVODOPA
     Indication: PARKINSON^S DISEASE
     Dosage: TWO INTAKES (NOS) PER DAY
     Route: 048
     Dates: start: 2016
  6. SINEMET PLUS 25/100 MG (IR) [Suspect]
     Active Substance: CARBIDOPA\LEVODOPA
     Dosage: UNK
  7. SINEMET [Suspect]
     Active Substance: CARBIDOPA\LEVODOPA
     Dosage: UNK

REACTIONS (8)
  - Wrong technique in product usage process [Unknown]
  - Parkinson^s disease [Recovering/Resolving]
  - Overdose [Unknown]
  - Product colour issue [Unknown]
  - Drug effect delayed [Recovering/Resolving]
  - Hyperhidrosis [Recovering/Resolving]
  - Product colour issue [Unknown]
  - Wrong technique in product usage process [Unknown]

NARRATIVE: CASE EVENT DATE: 2014
